FAERS Safety Report 7593553-6 (Version None)
Quarter: 2011Q3

REPORT INFORMATION
  Report Type: 
  Country: None (occurrence: None)
  Receive Date: 20110706
  Receipt Date: 20110701
  Transmission Date: 20111222
  Serious: No
  Sender: FDA-Public Use
  Company Number: US-TEVA-289073USA

PATIENT
  Sex: Male
  Weight: 63.56 kg

DRUGS (7)
  1. SINEMET [Concomitant]
     Indication: PARKINSON'S DISEASE
  2. SIMVASTATIN [Concomitant]
     Indication: BLOOD CHOLESTEROL INCREASED
  3. METOPROLOL TARTRATE [Concomitant]
  4. TOLTERODINE TARTRATE [Concomitant]
  5. AZILECT [Suspect]
     Indication: PARKINSON'S DISEASE
     Dosage: 1 MILLIGRAM;
     Route: 048
     Dates: start: 20100630
  6. TRIHEXYPHENIDYL HCL [Concomitant]
     Indication: PARKINSON'S DISEASE
  7. FISH OIL [Concomitant]

REACTIONS (1)
  - SQUAMOUS CELL CARCINOMA [None]
